FAERS Safety Report 14587417 (Version 5)
Quarter: 2020Q3

REPORT INFORMATION
  Report Type: Report from Study
  Country: JP (occurrence: JP)
  Receive Date: 20180301
  Receipt Date: 20180515
  Transmission Date: 20201104
  Serious: Yes (Hospitalization)
  Sender: FDA-Public Use
  Company Number: JP-ASTRAZENECA-2018SE25966

PATIENT
  Age: 26560 Day
  Sex: Female

DRUGS (14)
  1. DURVALUMAB. [Suspect]
     Active Substance: DURVALUMAB
     Indication: SMALL CELL LUNG CANCER
     Route: 042
     Dates: start: 20180131, end: 20180131
  2. ETOPOSIDE. [Suspect]
     Active Substance: ETOPOSIDE
     Indication: SMALL CELL LUNG CANCER
     Dosage: 1000 MG/M2 ON DAYS 1?3 OF EVERY THREE?WEEK CYCLE
     Route: 065
     Dates: start: 20180201, end: 20180201
  3. DURVALUMAB. [Suspect]
     Active Substance: DURVALUMAB
     Indication: SMALL CELL LUNG CANCER
     Route: 042
     Dates: start: 20180110, end: 20180110
  4. CARBOPLATIN. [Suspect]
     Active Substance: CARBOPLATIN
     Indication: SMALL CELL LUNG CANCER
     Dosage: 5.00 AUC EVERY THREE WEEKS
     Route: 065
     Dates: start: 20180110, end: 20180110
  5. TREMELIMUMAB. [Suspect]
     Active Substance: TREMELIMUMAB
     Indication: SMALL CELL LUNG CANCER
     Route: 042
     Dates: start: 20180131, end: 20180131
  6. ETOPOSIDE. [Suspect]
     Active Substance: ETOPOSIDE
     Indication: SMALL CELL LUNG CANCER
     Dosage: 1000 MG/M2 ON DAYS 1?3 OF EVERY THREE?WEEK CYCLE
     Route: 065
     Dates: start: 20180131, end: 20180131
  7. LOXONIN [Concomitant]
     Active Substance: LOXOPROFEN SODIUM
     Indication: MIGRAINE
     Dosage: 60.0MG AS REQUIRED
     Route: 048
     Dates: start: 20180129
  8. REBAMIPIDE [Concomitant]
     Active Substance: REBAMIPIDE
     Indication: PROPHYLAXIS AGAINST GASTROINTESTINAL ULCER
     Dosage: 100.0MG AS REQUIRED
     Route: 048
     Dates: start: 20180129
  9. ETOPOSIDE. [Suspect]
     Active Substance: ETOPOSIDE
     Indication: SMALL CELL LUNG CANCER
     Dosage: 1000 MG/M2 ON DAYS 1?3 OF EVERY THREE?WEEK CYCLE
     Route: 065
     Dates: start: 20180202, end: 20180202
  10. TREMELIMUMAB. [Suspect]
     Active Substance: TREMELIMUMAB
     Indication: SMALL CELL LUNG CANCER
     Route: 042
     Dates: start: 20180110, end: 20180110
  11. ETOPOSIDE. [Suspect]
     Active Substance: ETOPOSIDE
     Indication: SMALL CELL LUNG CANCER
     Dosage: 1000 MG/M2 ON DAYS 1?3 OF EVERY THREE?WEEK CYCLE
     Route: 065
     Dates: start: 20180112, end: 20180112
  12. ETOPOSIDE. [Suspect]
     Active Substance: ETOPOSIDE
     Indication: SMALL CELL LUNG CANCER
     Dosage: 1000 MG/M2 ON DAYS 1?3 OF EVERY THREE?WEEK CYCLE
     Route: 065
     Dates: start: 20180110, end: 20180110
  13. ETOPOSIDE. [Suspect]
     Active Substance: ETOPOSIDE
     Indication: SMALL CELL LUNG CANCER
     Dosage: 1000 MG/M2 ON DAYS 1?3 OF EVERY THREE?WEEK CYCLE
     Route: 065
     Dates: start: 20180111, end: 20180111
  14. CARBOPLATIN. [Suspect]
     Active Substance: CARBOPLATIN
     Indication: SMALL CELL LUNG CANCER
     Dosage: 5.00 AUC EVERY THREE WEEKS
     Route: 065
     Dates: start: 20180131, end: 20180131

REACTIONS (2)
  - Hypoparathyroidism [Recovering/Resolving]
  - Hypopituitarism [Recovering/Resolving]

NARRATIVE: CASE EVENT DATE: 20180222
